FAERS Safety Report 10443438 (Version 1)
Quarter: 2014Q3

REPORT INFORMATION
  Report Type: Spontaneous
  Country: IE (occurrence: IE)
  Receive Date: 20140910
  Receipt Date: 20140910
  Transmission Date: 20150326
  Serious: Yes (Death)
  Sender: FDA-Public Use
  Company Number: IE-AMGEN-IRLSP2014068259

PATIENT
  Age: 74 Year
  Sex: Male

DRUGS (9)
  1. ARANESP [Suspect]
     Active Substance: DARBEPOETIN ALFA
     Indication: HEPATITIS C
     Dosage: 30 MG, Q3WK
     Route: 058
     Dates: start: 20090327
  2. RASILEZ [Concomitant]
     Active Substance: ALISKIREN
  3. ONE ALPHA [Concomitant]
     Active Substance: ALFACALCIDOL
  4. ASPIRIN                            /00002701/ [Concomitant]
     Active Substance: ASPIRIN
  5. VITAMIN D                          /00107901/ [Concomitant]
     Active Substance: ERGOCALCIFEROL
  6. ELTROXIN [Concomitant]
     Active Substance: LEVOTHYROXINE
  7. TRANDATE [Concomitant]
     Active Substance: LABETALOL HYDROCHLORIDE
  8. LUSTRAL [Concomitant]
     Active Substance: SERTRALINE HYDROCHLORIDE
  9. PLAVIX [Concomitant]
     Active Substance: CLOPIDOGREL BISULFATE

REACTIONS (1)
  - Death [Fatal]
